FAERS Safety Report 5770445-6 (Version None)
Quarter: 2008Q2

REPORT INFORMATION
  Report Type: 
  Country: None (occurrence: None)
  Receive Date: 20080613
  Receipt Date: 20080429
  Transmission Date: 20081010
  Serious: No
  Sender: FDA-Public Use
  Company Number: US-ABBOTT-08P-163-0449880-00

PATIENT
  Sex: Female
  Weight: 40.86 kg

DRUGS (5)
  1. HUMIRA [Suspect]
     Indication: CROHN'S DISEASE
     Dosage: LOADING DOSE
     Route: 058
     Dates: start: 20080331, end: 20080331
  2. HUMIRA [Suspect]
     Dosage: DOSING ADJUSTED, CONSUMER HAD THE FLU
     Route: 058
     Dates: start: 20080422, end: 20080422
  3. HUMIRA [Suspect]
     Route: 058
  4. MESALAMINE [Concomitant]
     Indication: CROHN'S DISEASE
     Route: 048
     Dates: start: 19960101
  5. PAROXETINE HCL [Concomitant]
     Indication: DEPRESSION
     Route: 048
     Dates: start: 20010101

REACTIONS (5)
  - COUGH [None]
  - HEADACHE [None]
  - NASOPHARYNGITIS [None]
  - SINUS HEADACHE [None]
  - VIRAL INFECTION [None]
